FAERS Safety Report 9062748 (Version 2)
Quarter: 2013Q2

REPORT INFORMATION
  Report Type: Spontaneous
  Country: US (occurrence: US)
  Receive Date: 20130213
  Receipt Date: 20130510
  Transmission Date: 20140414
  Serious: No
  Sender: FDA-Public Use
  Company Number: US-PFIZER INC-2013054640

PATIENT
  Age: 50 Year
  Sex: Female

DRUGS (10)
  1. XELJANZ [Suspect]
     Indication: RHEUMATOID ARTHRITIS
     Dosage: 10 MG, DAILY
     Route: 048
     Dates: start: 201302
  2. CENTRUM SILVER [Concomitant]
     Dosage: UNK
  3. VITAMIN C [Concomitant]
     Dosage: 250 MG, UNK
  4. PREDNISONE [Concomitant]
     Dosage: 5 MG, UNK
  5. LEFLUNOMIDE [Concomitant]
     Dosage: 20 MG, UNK
  6. HYDROXYCHLOROQUINE [Concomitant]
     Dosage: 200 MG, UNK
  7. FERROUS SULFATE [Concomitant]
     Dosage: 27 MG, UNK
  8. CALCIUM WITH VITAMIN D [Concomitant]
     Dosage: CALCIUM 500/ VITAMIN D 400
  9. FOLIC ACID [Concomitant]
     Dosage: 800 UG, UNK
  10. ODORLESS GARLIC [Concomitant]
     Dosage: UNK

REACTIONS (3)
  - Myalgia [Unknown]
  - Decreased appetite [Unknown]
  - Rash [Unknown]
